FAERS Safety Report 4966178-6 (Version None)
Quarter: 2006Q2

REPORT INFORMATION
  Report Type: 
  Country: None (occurrence: None)
  Receive Date: 20060407
  Receipt Date: 20060328
  Transmission Date: 20061013
  Serious: Yes (Hospitalization)
  Sender: FDA-Public Use
  Company Number: ES-BRISTOL-MYERS SQUIBB COMPANY-13328901

PATIENT
  Age: 48 Year
  Sex: Male

DRUGS (6)
  1. REYATAZ [Suspect]
     Indication: HIV INFECTION
     Route: 048
     Dates: start: 20041126, end: 20060126
  2. VIDEX EC [Interacting]
     Indication: HIV INFECTION
     Route: 048
     Dates: start: 20021030, end: 20060126
  3. VIREAD [Interacting]
     Indication: HIV INFECTION
     Route: 048
     Dates: start: 20021030, end: 20060126
  4. RITONAVIR [Interacting]
     Indication: HIV INFECTION
     Route: 048
     Dates: start: 20041126, end: 20060126
  5. ADIRO [Concomitant]
     Indication: MYOCARDIAL ISCHAEMIA
     Route: 048
  6. ATENOLOL [Concomitant]
     Indication: MYOCARDIAL ISCHAEMIA
     Route: 048

REACTIONS (2)
  - DRUG INTERACTION [None]
  - PANCREATITIS [None]
